FAERS Safety Report 4466011-5 (Version None)
Quarter: 2004Q3

REPORT INFORMATION
  Report Type: 
  Country: None (occurrence: None)
  Receive Date: 20040930
  Receipt Date: 20040913
  Transmission Date: 20050211
  Serious: Yes (Other)
  Sender: FDA-Public Use
  Company Number: B0345557A

PATIENT
  Age: 58 Year
  Sex: Female

DRUGS (2)
  1. EPIVIR [Suspect]
     Indication: HEPATITIS B
     Dosage: ORAL
     Route: 048
     Dates: start: 20030901
  2. METHYLPREDNISOLONE [Concomitant]

REACTIONS (2)
  - GRAND MAL CONVULSION [None]
  - LEUKOENCEPHALOPATHY [None]
